FAERS Safety Report 5626668-X (Version None)
Quarter: 2008Q1

REPORT INFORMATION
  Report Type: 
  Country: None (occurrence: None)
  Receive Date: 20080214
  Receipt Date: 20080211
  Transmission Date: 20080703
  Serious: No
  Sender: FDA-Public Use
  Company Number: US-BOEHRINGER INGELHEIM GMBH, GERMANY-2007-BP-25466BP

PATIENT
  Age: 88 Year
  Sex: Male

DRUGS (3)
  1. MIRAPEX [Suspect]
     Indication: PARKINSON'S DISEASE
     Route: 048
     Dates: start: 20071001
  2. LEVODOPA [Concomitant]
  3. SYNTHROID [Concomitant]

REACTIONS (2)
  - DIZZINESS [None]
  - STOMACH DISCOMFORT [None]
